FAERS Safety Report 8252169-9 (Version None)
Quarter: 2012Q2

REPORT INFORMATION
  Report Type: 
  Country: None (occurrence: None)
  Receive Date: 20120402
  Receipt Date: 20120322
  Transmission Date: 20120825
  Serious: Yes (Other)
  Sender: FDA-Public Use
  Company Number: CA-FRI-1000029463

PATIENT
  Age: 16 Year
  Sex: Female

DRUGS (2)
  1. ESCITALOPRAM [Suspect]
     Indication: DEPRESSION
     Dosage: 10 MG
     Route: 048
  2. ESCITALOPRAM [Suspect]
     Dosage: OVERDOSE: ESCITALOPRAM (50 MG AT ONCE)
     Route: 048

REACTIONS (4)
  - OFF LABEL USE [None]
  - INTENTIONAL SELF-INJURY [None]
  - CONVULSION [None]
  - INTENTIONAL OVERDOSE [None]
